FAERS Safety Report 15415165 (Version 1)
Quarter: 2018Q3

REPORT INFORMATION
  Report Type: Spontaneous
  Country: CN (occurrence: CN)
  Receive Date: 20180921
  Receipt Date: 20180921
  Transmission Date: 20181010
  Serious: Yes (Other)
  Sender: FDA-Public Use
  Company Number: CN-GEHC-2018CSU003639

PATIENT

DRUGS (2)
  1. OMNIPAQUE [Suspect]
     Active Substance: IOHEXOL
     Indication: LUNG INFECTION
     Dosage: UNK UNK, SINGLE
     Route: 042
     Dates: start: 20161121, end: 20161121
  2. NORMAL SALINE [Concomitant]
     Active Substance: SODIUM CHLORIDE
     Dosage: 20 ML, UNK
     Route: 042

REACTIONS (6)
  - Burning sensation [Recovered/Resolved]
  - Extravasation [Recovered/Resolved]
  - Peripheral swelling [Recovered/Resolved]
  - Injection site pain [Recovered/Resolved]
  - Injection site swelling [Recovered/Resolved]
  - Blister [Recovered/Resolved]

NARRATIVE: CASE EVENT DATE: 20161121
